FAERS Safety Report 12790432 (Version 2)
Quarter: 2016Q4

REPORT INFORMATION
  Report Type: Spontaneous
  Country: US (occurrence: US)
  Receive Date: 20160929
  Receipt Date: 20161018
  Transmission Date: 20170207
  Serious: Yes (Hospitalization, Other)
  Sender: FDA-Public Use
  Company Number: US-ROCHE-1835673

PATIENT
  Age: 63 Year
  Sex: Female
  Weight: 52.66 kg

DRUGS (5)
  1. FLONASE (UNITED STATES) [Concomitant]
     Indication: RHINITIS ALLERGIC
     Route: 050
  2. XOLAIR [Suspect]
     Active Substance: OMALIZUMAB
     Indication: PRODUCT USED FOR UNKNOWN INDICATION
     Route: 065
  3. NUCALA [Suspect]
     Active Substance: MEPOLIZUMAB
     Indication: ASTHMA
     Route: 058
     Dates: start: 20160519, end: 20160621
  4. DULERA [Concomitant]
     Active Substance: FORMOTEROL FUMARATE DIHYDRATE\MOMETASONE FUROATE
     Indication: ASTHMA
     Route: 050
  5. OMEPRAZOLE. [Concomitant]
     Active Substance: OMEPRAZOLE
     Indication: GASTROOESOPHAGEAL REFLUX DISEASE
     Route: 048

REACTIONS (10)
  - Fatigue [Unknown]
  - Wheezing [Unknown]
  - Weight increased [Unknown]
  - Abdominal distension [Unknown]
  - Asthma [Unknown]
  - Oedema peripheral [Unknown]
  - Status asthmaticus [Unknown]
  - Cough [Unknown]
  - Pleurisy [Unknown]
  - Dyspnoea [Unknown]

NARRATIVE: CASE EVENT DATE: 20160708
